FAERS Safety Report 15257799 (Version 1)
Quarter: 2018Q3

REPORT INFORMATION
  Report Type: Spontaneous
  Country: US (occurrence: US)
  Receive Date: 20180718
  Receipt Date: 20180718
  Transmission Date: 20181010
  Serious: Yes (Other)
  Sender: FDA-Public Use
  Company Number: None

PATIENT
  Age: 37 Year
  Sex: Female
  Weight: 79 kg

DRUGS (1)
  1. OMNIPAQUE [Suspect]
     Active Substance: IOHEXOL
     Indication: ENDOMETRIAL SARCOMA METASTATIC
     Route: 048
     Dates: start: 20180713, end: 20180713

REACTIONS (1)
  - Urticaria [None]

NARRATIVE: CASE EVENT DATE: 20180713
